FAERS Safety Report 5657755-8 (Version None)
Quarter: 2008Q1

REPORT INFORMATION
  Report Type: 
  Country: None (occurrence: None)
  Receive Date: 20080305
  Receipt Date: 20080220
  Transmission Date: 20080703
  Serious: Yes (Other)
  Sender: FDA-Public Use
  Company Number: 18449

PATIENT
  Age: 11 Year
  Sex: Male

DRUGS (12)
  1. CARBOPLATIN [Suspect]
     Indication: YOLK SAC TUMOUR SITE UNSPECIFIED
     Dosage: 500 MG/M2 QD
  2. ETOPOSIDE [Suspect]
     Indication: YOLK SAC TUMOUR SITE UNSPECIFIED
     Dosage: 250 MG/M2 QD
  3. THIOTEPA [Suspect]
     Indication: YOLK SAC TUMOUR SITE UNSPECIFIED
     Dosage: 300 MG/M2 QD
  4. NEUPOGEN [Concomitant]
  5. FLUCONAZOLE [Concomitant]
  6. SEPTRIN [Concomitant]
  7. ACYCLOVIR [Concomitant]
  8. RADIOTHERAPY [Concomitant]
  9. BLEOMYCIN [Concomitant]
  10. CYCLOPHOSPHAMIDE [Concomitant]
  11. TOPOTECAN [Concomitant]
  12. CISPLATIN [Concomitant]

REACTIONS (4)
  - FEBRILE NEUTROPENIA [None]
  - MUCOSAL INFLAMMATION [None]
  - NEPHROPATHY TOXIC [None]
  - VENOOCCLUSIVE LIVER DISEASE [None]
